FAERS Safety Report 6153273-1 (Version None)
Quarter: 2009Q2

REPORT INFORMATION
  Report Type: 
  Country: None (occurrence: None)
  Receive Date: 20090413
  Receipt Date: 20090403
  Transmission Date: 20091009
  Serious: Yes (Other)
  Sender: FDA-Public Use
  Company Number: US-PURDUE-USA_2009_0037720

PATIENT
  Sex: Female

DRUGS (1)
  1. PERI-COLACE 8.6 MG/50 MG [Suspect]
     Indication: CONSTIPATION
     Dosage: 2 TABLET, BID

REACTIONS (3)
  - DRUG DEPENDENCE [None]
  - DYSGEUSIA [None]
  - NAUSEA [None]
